FAERS Safety Report 20845540 (Version 1)
Quarter: 2022Q2

REPORT INFORMATION
  Report Type: Spontaneous
  Country: US (occurrence: US)
  Receive Date: 20220518
  Receipt Date: 20220518
  Transmission Date: 20220721
  Serious: No
  Sender: FDA-Public Use
  Company Number: USA--2022-US-000025

PATIENT
  Age: 79 Year
  Sex: Female

DRUGS (6)
  1. BRIMONIDINE TARTRATE [Suspect]
     Active Substance: BRIMONIDINE TARTRATE
     Dates: start: 20220108, end: 20220110
  2. PRED FORTE [Concomitant]
     Active Substance: PREDNISOLONE ACETATE
  3. Prolensa 0.07% ophthalmic solution [Concomitant]
  4. SYNTHROID [Concomitant]
     Active Substance: LEVOTHYROXINE SODIUM
  5. ROCALTROL [Concomitant]
     Active Substance: CALCITRIOL
  6. Refresh Tears lubricant eye solution [Concomitant]

REACTIONS (2)
  - Dry eye [Recovering/Resolving]
  - Vision blurred [Recovering/Resolving]

NARRATIVE: CASE EVENT DATE: 20220108
